FAERS Safety Report 19807847 (Version 1)
Quarter: 2021Q3

REPORT INFORMATION
  Report Type: Spontaneous
  Country: GB (occurrence: GB)
  Receive Date: 20210908
  Receipt Date: 20210908
  Transmission Date: 20211014
  Serious: Yes (Other)
  Sender: FDA-Public Use
  Company Number: GB-MYLANLABS-2021M1058732

PATIENT
  Age: 48 Year
  Sex: Female
  Weight: 96 kg

DRUGS (22)
  1. DIAZEPAM. [Concomitant]
     Active Substance: DIAZEPAM
     Indication: ANXIETY
     Dosage: TAKE ONE OR TWO AS NEEDED
     Dates: start: 20210626
  2. OZEMPIC [Concomitant]
     Active Substance: SEMAGLUTIDE
     Dosage: 1 DOSAGE FORM, QW
     Dates: start: 20210323
  3. SPIRONOLACTONE. [Concomitant]
     Active Substance: SPIRONOLACTONE
     Indication: BLOOD PRESSURE ABNORMAL
     Dosage: 1 DOSAGE FORM, QD
     Route: 048
     Dates: start: 20210524
  4. ORAMORPH [Concomitant]
     Active Substance: MORPHINE SULFATE
     Dosage: TAKE 2.5?5MLS EVERY 4?6 HOURS
     Dates: start: 20180405
  5. BUSCOPAN [Concomitant]
     Active Substance: BUTYLSCOPOLAMINE BROMIDE
     Dosage: 2 DOSAGE FORM, QID
     Dates: start: 20190731
  6. NAPROXEN. [Concomitant]
     Active Substance: NAPROXEN
     Dosage: 1 DOSAGE FORM, BID (WITH/AFTER FOOD ? WEAN TO)
     Dates: start: 20191206
  7. OMEPRAZOLE. [Concomitant]
     Active Substance: OMEPRAZOLE
     Dosage: TAKE 1 OR 2 CAPSULES DAILY
     Route: 048
     Dates: start: 20210414
  8. LANSOPRAZOLE. [Concomitant]
     Active Substance: LANSOPRAZOLE
     Dosage: 1 OR 2CAPSULES TO BE TAKEN ONCE A DAY
     Route: 048
     Dates: start: 20210812
  9. CLENIL MODULITE [Concomitant]
     Active Substance: BECLOMETHASONE DIPROPIONATE
     Dosage: 1 DOSAGE FORM, BID
     Route: 055
     Dates: start: 20191206
  10. MOVICOL [Concomitant]
     Active Substance: POLYETHYLENE GLYCOL 3350\POTASSIUM CHLORIDE\SODIUM BICARBONATE\SODIUM CHLORIDE
     Dosage: USE AS DIRECTED
     Dates: start: 20170412
  11. COLCHICINE. [Concomitant]
     Active Substance: COLCHICINE
     Dosage: ONE (OR TWO IN CASE OF FLARE)  TO BE TAKEN DAILY
     Dates: start: 20160915
  12. EMPAGLIFLOZIN [Concomitant]
     Active Substance: EMPAGLIFLOZIN
     Indication: DIABETES MELLITUS
     Dosage: 1 DOSAGE FORM, QD
     Route: 048
     Dates: start: 20210323
  13. EPADERM [Concomitant]
     Active Substance: MINERAL OIL\PETROLATUM\WAX, EMULSIFYING
     Dosage: USE AS DIRECTED
     Dates: start: 20201118
  14. MEZOLAR [Concomitant]
     Active Substance: FENTANYL
     Dosage: 1 DOSAGE FORM, Q3D (APPLY PATCH)
     Dates: start: 20191206
  15. VENTOLIN [Concomitant]
     Active Substance: ALBUTEROL SULFATE
     Dosage: 2 DOSAGE FORM
     Route: 055
     Dates: start: 20191206
  16. BISOPROLOL [Concomitant]
     Active Substance: BISOPROLOL
     Dosage: 1 DOSAGE FORM, QD
     Route: 048
     Dates: start: 20210323
  17. CITALOPRAM [Concomitant]
     Active Substance: CITALOPRAM HYDROBROMIDE
     Indication: AFFECTIVE DISORDER
     Dosage: TAKE 1 OR 2 TAB DAILY, TO IMPROVE MOOD
     Route: 048
     Dates: start: 20191206
  18. ZAPAIN [Concomitant]
     Active Substance: ACETAMINOPHEN\CODEINE PHOSPHATE
     Dosage: TAKE 1 OR 2 TABLETS, UP TO FOUR TIMES A DAY...
     Route: 048
     Dates: start: 20191206
  19. FLUOXETINE [Suspect]
     Active Substance: FLUOXETINE HYDROCHLORIDE
     Indication: PRODUCT USED FOR UNKNOWN INDICATION
     Dosage: 20 MILLIGRAM, QD (IN THE MORNING TO RAISE)
     Route: 048
     Dates: start: 20210614, end: 20210626
  20. FLUTICASONE FUROATE [Concomitant]
     Active Substance: FLUTICASONE FUROATE
     Dosage: 1 DOSAGE FORM, QD
     Dates: start: 20150130
  21. HUMULIN L [Concomitant]
     Active Substance: INSULIN HUMAN
     Dosage: UNK
     Route: 058
     Dates: start: 20210323
  22. LEVOTHYROXINE. [Concomitant]
     Active Substance: LEVOTHYROXINE
     Dosage: EVERY MORNING, TO TREAT UNDERAC...
     Route: 048
     Dates: start: 20210323

REACTIONS (1)
  - Pharyngeal swelling [Recovered/Resolved]

NARRATIVE: CASE EVENT DATE: 20210619
